FAERS Safety Report 7060765-X (Version None)
Quarter: 2010Q4

REPORT INFORMATION
  Report Type: 
  Country: None (occurrence: None)
  Receive Date: 20101025
  Receipt Date: 20101019
  Transmission Date: 20110411
  Serious: Yes (Other)
  Sender: FDA-Public Use
  Company Number: GR-BAXTER-2010BH026208

PATIENT

DRUGS (5)
  1. CYCLOPHOSPHAMIDE [Suspect]
     Indication: PRIMARY AMYLOIDOSIS
     Route: 065
  2. CYCLOPHOSPHAMIDE [Suspect]
     Route: 065
  3. LENALIDOMIDE [Suspect]
     Indication: PRIMARY AMYLOIDOSIS
     Route: 065
  4. LENALIDOMIDE [Suspect]
     Route: 065
  5. DEXAMETHASONE [Suspect]
     Indication: PRIMARY AMYLOIDOSIS
     Route: 065

REACTIONS (1)
  - CEREBROVASCULAR ACCIDENT [None]
